FAERS Safety Report 7090376-1 (Version None)
Quarter: 2010Q4

REPORT INFORMATION
  Report Type: 
  Country: None (occurrence: None)
  Receive Date: 20101109
  Receipt Date: 20101027
  Transmission Date: 20110411
  Serious: No
  Sender: FDA-Public Use
  Company Number: PHHY2010DE24153

PATIENT
  Sex: Male
  Weight: 94 kg

DRUGS (1)
  1. LDT600 LDT+ [Suspect]
     Indication: HEPATITIS B
     Dosage: 600 MG, DAILY
     Route: 048
     Dates: start: 20090504

REACTIONS (1)
  - HEPATITIS B DNA INCREASED [None]
